FAERS Safety Report 9052755 (Version 1)
Quarter: 2013Q1

REPORT INFORMATION
  Report Type: Spontaneous
  Country: US (occurrence: US)
  Receive Date: 20130207
  Receipt Date: 20130207
  Transmission Date: 20140127
  Serious: Yes (Other)
  Sender: FDA-Public Use
  Company Number: US-JNJFOC-20130200771

PATIENT
  Sex: Female

DRUGS (1)
  1. NEOSPORIN ORIGINAL [Suspect]
     Indication: SINUSITIS
     Dosage: A COUPLE OF DROPS, 2 TIMES A DAY AT FIRST, THEN WENT DOWN TO ONCE.
     Route: 061
     Dates: start: 20130101, end: 20130129

REACTIONS (4)
  - Obstructive airways disorder [Unknown]
  - Off label use [Unknown]
  - Therapeutic response unexpected [Unknown]
  - Expired drug administered [Unknown]
